FAERS Safety Report 4361301-9 (Version None)
Quarter: 2004Q2

REPORT INFORMATION
  Report Type: 
  Country: None (occurrence: None)
  Receive Date: 20040520
  Receipt Date: 20040513
  Transmission Date: 20050107
  Serious: Yes (Life-Threatening)
  Sender: FDA-Public Use
  Company Number: PHBS2004TR06499

PATIENT
  Age: 70 Year
  Sex: Female
  Weight: 65 kg

DRUGS (5)
  1. ZELMAC [Suspect]
     Indication: ABDOMINAL DISTENSION
     Dosage: 2 TABLETS/DAY
     Route: 048
  2. NORVASC [Concomitant]
     Route: 065
  3. COVERSYL [Concomitant]
     Route: 065
  4. PLAVIX [Concomitant]
     Route: 065
  5. GLUCOPHAG [Concomitant]
     Route: 065

REACTIONS (1)
  - HYPOAESTHESIA [None]
